FAERS Safety Report 6148216-0 (Version None)
Quarter: 2009Q2

REPORT INFORMATION
  Report Type: 
  Country: None (occurrence: None)
  Receive Date: 20090408
  Receipt Date: 20090403
  Transmission Date: 20091009
  Serious: Yes (Hospitalization)
  Sender: FDA-Public Use
  Company Number: PHHO2009JP04521

PATIENT
  Sex: Female
  Weight: 58 kg

DRUGS (6)
  1. CGS 20267 T30748+TAB [Suspect]
     Indication: BREAST CANCER
     Dosage: 2.5 MG
     Route: 048
     Dates: start: 20070726
  2. AMLODIPINE [Concomitant]
     Indication: HYPERTENSION
  3. TEPRENONE [Concomitant]
  4. AMARYL [Concomitant]
     Indication: DIABETES MELLITUS
  5. GLYCYRON [Concomitant]
     Indication: LIVER DISORDER
  6. MIYARISAN BM [Concomitant]
     Indication: ABDOMINAL PAIN

REACTIONS (2)
  - ANKLE FRACTURE [None]
  - FALL [None]
